FAERS Safety Report 9861658 (Version 2)
Quarter: 2014Q1

REPORT INFORMATION
  Report Type: Report from Study
  Country: US (occurrence: US)
  Receive Date: 20140203
  Receipt Date: 20140203
  Transmission Date: 20141002
  Serious: Yes (Other)
  Sender: FDA-Public Use
  Company Number: US-ROCHE-1271758

PATIENT
  Sex: Female

DRUGS (8)
  1. LUCENTIS [Suspect]
     Indication: CYSTOID MACULAR OEDEMA
     Dosage: RIGHT EYE, 0.5 MG/0.05 ML
     Route: 050
     Dates: start: 20100405
  2. LUCENTIS [Suspect]
     Indication: AGE-RELATED MACULAR DEGENERATION
     Dosage: (0.5 MG/0.05 ML), MOST RECENT DOSE
     Route: 050
     Dates: start: 20140109
  3. LUCENTIS [Suspect]
     Indication: RETINAL TELANGIECTASIA
  4. AVASTIN [Suspect]
     Indication: PRODUCT USED FOR UNKNOWN INDICATION
     Route: 050
  5. ASA [Concomitant]
     Route: 065
  6. COZAAR [Concomitant]
  7. FISH OIL [Concomitant]
  8. METFORMIN HYDROCHLORIDE [Concomitant]
     Route: 065

REACTIONS (4)
  - Eye inflammation [Unknown]
  - Visual acuity reduced [Not Recovered/Not Resolved]
  - Macular degeneration [Not Recovered/Not Resolved]
  - Retinal disorder [Not Recovered/Not Resolved]
